FAERS Safety Report 20391773 (Version 1)
Quarter: 2022Q1

REPORT INFORMATION
  Report Type: Other
  Country: IT (occurrence: IT)
  Receive Date: 20220128
  Receipt Date: 20220128
  Transmission Date: 20220423
  Serious: Yes (Other)
  Sender: FDA-Public Use
  Company Number: IT-EMA-DD-20220117-singh_p11-114914

PATIENT
  Age: 58 Year
  Sex: Female

DRUGS (5)
  1. PRALSETINIB [Suspect]
     Active Substance: PRALSETINIB
     Indication: Lung adenocarcinoma stage III
     Dosage: OFF LABEL USE; ACTION TAKEN: TEMPORARILY DISCONTINUED AND THEN RESTARTED IN A REDUCED DOSE
     Route: 065
     Dates: start: 20200814
  2. CARBOPLATIN [Suspect]
     Active Substance: CARBOPLATIN
     Indication: Lung adenocarcinoma stage III
     Route: 065
     Dates: start: 201802
  3. PEMETREXED [Suspect]
     Active Substance: PEMETREXED
     Indication: Lung adenocarcinoma stage III
     Dosage: PEMETREXED (4 CYCLES), FOLLOWED BY MAINTENANCE THERAPY WITH PEMETREXED ONLY
     Route: 065
     Dates: start: 201802
  4. ATEZOLIZUMAB [Concomitant]
     Active Substance: ATEZOLIZUMAB
     Indication: Lung adenocarcinoma stage III
     Dosage: SECOND-LINE
     Route: 065
     Dates: start: 201909
  5. DENOSUMAB [Concomitant]
     Active Substance: DENOSUMAB

REACTIONS (5)
  - Anaemia [Recovered/Resolved]
  - Nephropathy toxic [Unknown]
  - Hypophosphataemia [Recovered/Resolved]
  - Off label use [Unknown]
  - Neutropenia [Recovered/Resolved]
